FAERS Safety Report 17666842 (Version 1)
Quarter: 2020Q2

REPORT INFORMATION
  Report Type: Spontaneous
  Country: US (occurrence: US)
  Receive Date: 20200414
  Receipt Date: 20200414
  Transmission Date: 20200713
  Serious: No
  Sender: FDA-Public Use
  Company Number: US-JAZZ-2020-US-001489

PATIENT
  Sex: Female

DRUGS (6)
  1. SUNOSI [Suspect]
     Active Substance: SOLRIAMFETOL
     Indication: CATAPLEXY
  2. ARMODAFINIL. [Concomitant]
     Active Substance: ARMODAFINIL
     Indication: CATAPLEXY
  3. SUNOSI [Suspect]
     Active Substance: SOLRIAMFETOL
     Indication: NARCOLEPSY
     Dosage: UNK
  4. XYREM [Concomitant]
     Active Substance: SODIUM OXYBATE
     Indication: CATAPLEXY
  5. ARMODAFINIL. [Concomitant]
     Active Substance: ARMODAFINIL
     Indication: NARCOLEPSY
  6. XYREM [Concomitant]
     Active Substance: SODIUM OXYBATE
     Indication: NARCOLEPSY

REACTIONS (1)
  - Drug intolerance [Unknown]
